FAERS Safety Report 8776339 (Version 1)
Quarter: 2012Q4

REPORT INFORMATION
  Report Type: 
  Country: FR (occurrence: FR)
  Receive Date: 20120910
  Receipt Date: 20120910
  Transmission Date: 20130627
  Serious: Yes (Other)
  Sender: FDA-Public Use
  Company Number: FR-009507513-1104FRA00161

PATIENT

DRUGS (1)
  1. EZETROL [Suspect]
     Dosage: 10 mg, UNK
     Route: 048

REACTIONS (1)
  - Autoimmune thrombocytopenia [Recovered/Resolved]
